FAERS Safety Report 6992376-6 (Version None)
Quarter: 2010Q3

REPORT INFORMATION
  Report Type: 
  Country: None (occurrence: None)
  Receive Date: 20100917
  Receipt Date: 20100913
  Transmission Date: 20110219
  Serious: Yes (Death, Hospitalization)
  Sender: FDA-Public Use
  Company Number: US-SANOFI-AVENTIS-2010SA052568

PATIENT
  Age: 74 Year
  Sex: Female

DRUGS (17)
  1. TAXOTERE [Suspect]
     Route: 041
     Dates: start: 20100616, end: 20100616
  2. TAXOTERE [Suspect]
     Route: 041
     Dates: start: 20100630, end: 20100630
  3. ERLOTINIB HYDROCHLORIDE [Suspect]
     Route: 048
     Dates: start: 20100616, end: 20100709
  4. TYLENOL [Concomitant]
  5. DIPHENHYDRAMINE/PARACETAMOL [Concomitant]
  6. SYNTHROID [Concomitant]
  7. DEXAMETHASONE [Concomitant]
  8. LABETALOL HCL [Concomitant]
     Dates: start: 20100706
  9. AMBIEN [Concomitant]
     Dates: start: 20100702, end: 20100709
  10. NEBIVOLOL [Concomitant]
     Dates: start: 20100630, end: 20100706
  11. ERGOCALCIFEROL [Concomitant]
     Dosage: DOSE:1000 UNIT(S)
     Dates: start: 20100706, end: 20100709
  12. FERROUS SULFATE [Concomitant]
     Dates: start: 20100302, end: 20100709
  13. MULTI-VITAMINS [Concomitant]
     Dates: start: 20100302, end: 20100709
  14. OMEPRAZOLE [Concomitant]
     Dates: start: 20100608, end: 20100709
  15. PROCHLORPERAZINE [Concomitant]
     Indication: NAUSEA
     Dates: start: 20100706, end: 20100709
  16. MULTI-VITAMINS [Concomitant]
     Dates: start: 20100706, end: 20100709
  17. ZOFRAN [Concomitant]
     Dosage: 2 TABS QAM FOR LST 3 DAYS AFTER CHEMO
     Dates: start: 20100330, end: 20100709

REACTIONS (10)
  - ASTHENIA [None]
  - CONSTIPATION [None]
  - DECREASED APPETITE [None]
  - DIARRHOEA [None]
  - DISEASE PROGRESSION [None]
  - DYSPNOEA [None]
  - ESCHERICHIA INFECTION [None]
  - FATIGUE [None]
  - GASTROINTESTINAL FISTULA [None]
  - STOMATITIS [None]
